FAERS Safety Report 10173069 (Version 1)
Quarter: 2014Q2

REPORT INFORMATION
  Report Type: Spontaneous
  Country: DK (occurrence: DK)
  Receive Date: 20140515
  Receipt Date: 20140515
  Transmission Date: 20141212
  Serious: Yes (Hospitalization)
  Sender: FDA-Public Use
  Company Number: DK-JNJFOC-20140501894

PATIENT
  Age: 75 Year
  Sex: Female

DRUGS (4)
  1. BRENTAN [Suspect]
     Indication: ORAL CANDIDIASIS
     Dosage: 20MG/G
     Route: 048
     Dates: start: 20140124, end: 20140130
  2. MAREVAN [Interacting]
     Indication: ATRIAL FIBRILLATION
     Dosage: DOSE ALTERNATING
     Route: 048
     Dates: start: 20050101
  3. PARACETAMOL [Concomitant]
     Indication: PRODUCT USED FOR UNKNOWN INDICATION
     Route: 065
  4. ASPIRIN [Concomitant]
     Indication: PRODUCT USED FOR UNKNOWN INDICATION
     Route: 065

REACTIONS (3)
  - Mucosal haemorrhage [Recovered/Resolved]
  - Drug interaction [Unknown]
  - Injection site haematoma [Unknown]
